FAERS Safety Report 25356491 (Version 1)
Quarter: 2025Q2

REPORT INFORMATION
  Report Type: Other
  Country: CN (occurrence: CN)
  Receive Date: 20250526
  Receipt Date: 20250526
  Transmission Date: 20250717
  Serious: Yes (Other)
  Sender: ANI
  Company Number: CN-ANIPHARMA-022891

PATIENT
  Age: 21 Year
  Sex: Female

DRUGS (2)
  1. PENICILLAMINE [Suspect]
     Active Substance: PENICILLAMINE
     Indication: Hepato-lenticular degeneration
     Route: 048
     Dates: start: 2016
  2. SUCCIMER [Concomitant]
     Active Substance: SUCCIMER
     Indication: Hepato-lenticular degeneration

REACTIONS (2)
  - Abortion spontaneous [Unknown]
  - Exposure during pregnancy [Unknown]
